FAERS Safety Report 5430794-8 (Version None)
Quarter: 2007Q3

REPORT INFORMATION
  Report Type: 
  Country: None (occurrence: None)
  Receive Date: 20070830
  Receipt Date: 20061127
  Transmission Date: 20080115
  Serious: No
  Sender: FDA-Public Use
  Company Number: A0628672A

PATIENT
  Age: 21 Year
  Sex: Male

DRUGS (2)
  1. WELLBUTRIN XL [Suspect]
     Dosage: 150MG PER DAY
     Route: 048
     Dates: start: 20061123
  2. LEXAPRO [Concomitant]

REACTIONS (2)
  - LYMPHADENOPATHY [None]
  - TONGUE BLISTERING [None]
